FAERS Safety Report 16425992 (Version 1)
Quarter: 2019Q2

REPORT INFORMATION
  Report Type: Spontaneous
  Country: US (occurrence: US)
  Receive Date: 20190613
  Receipt Date: 20190613
  Transmission Date: 20190711
  Serious: No
  Sender: FDA-Public Use
  Company Number: US-PFIZER INC-2019250196

PATIENT
  Age: 51 Year
  Sex: Female
  Weight: 88 kg

DRUGS (3)
  1. FLECTOR [Suspect]
     Active Substance: DICLOFENAC EPOLAMINE
     Indication: PAIN
     Dosage: 4 PATCHES A DAY
     Route: 061
  2. FLECTOR [Suspect]
     Active Substance: DICLOFENAC EPOLAMINE
     Indication: INFLAMMATION
     Dosage: 3 PATCHES A DAY
     Route: 061
  3. FLECTOR [Suspect]
     Active Substance: DICLOFENAC EPOLAMINE
     Dosage: ONE PATCH EVERY 12 HOURS (AS NEEDED, UP TO 3 PATCH)
     Route: 061

REACTIONS (6)
  - Panic attack [Unknown]
  - Palpitations [Unknown]
  - Cerebral disorder [Unknown]
  - Therapeutic product effect incomplete [Unknown]
  - Expired product administered [Unknown]
  - Tremor [Unknown]

NARRATIVE: CASE EVENT DATE: 20190604
